FAERS Safety Report 8467019 (Version 3)
Quarter: 2012Q4

REPORT INFORMATION
  Report Type: 
  Country: US (occurrence: US)
  Receive Date: 20120320
  Receipt Date: 20120830
  Transmission Date: 20130627
  Serious: Yes (Other)
  Sender: FDA-Public Use
  Company Number: US-BAYER-2012-026678

PATIENT
  Age: 58 Year
  Sex: Female
  Weight: 91 kg

DRUGS (5)
  1. BETASERON [Suspect]
     Indication: MULTIPLE SCLEROSIS
     Dosage: 0.3 mg, QOD
     Route: 058
     Dates: start: 200908
  2. BETASERON [Suspect]
     Indication: MULTIPLE SCLEROSIS
     Dosage: UNK
  3. BACLOFEN [Concomitant]
     Indication: MUSCLE SPASMS
     Dosage: 10 mg, 2-3 per day
  4. AMPYRA [Concomitant]
     Indication: GAIT DISTURBANCE
     Dosage: 10 mg, BID
     Dates: start: 201105
  5. IBUPROFEN [Concomitant]
     Dosage: 400 mg, BID

REACTIONS (4)
  - Multiple sclerosis [None]
  - Mobility decreased [None]
  - Fatigue [None]
  - Optic neuritis [None]
